FAERS Safety Report 4620530-7 (Version None)
Quarter: 2005Q1

REPORT INFORMATION
  Report Type: 
  Country: None (occurrence: None)
  Receive Date: 20050328
  Receipt Date: 20050318
  Transmission Date: 20050727
  Serious: Yes (Other)
  Sender: FDA-Public Use
  Company Number: US-GLAXOSMITHKLINE-A0550455A

PATIENT
  Sex: Female

DRUGS (2)
  1. WELLBUTRIN XL [Suspect]
     Indication: DEPRESSION
     Route: 048
     Dates: start: 20050304
  2. NO CONCURRENT MEDICATION [Concomitant]

REACTIONS (6)
  - ABORTION SPONTANEOUS [None]
  - AGITATION [None]
  - CHILLS [None]
  - DRUG EXPOSURE DURING PREGNANCY [None]
  - INSOMNIA [None]
  - PARAESTHESIA [None]
